FAERS Safety Report 8599672-X (Version None)
Quarter: 2012Q3

REPORT INFORMATION
  Report Type: 
  Country: None (occurrence: None)
  Receive Date: 20120816
  Receipt Date: 20120809
  Transmission Date: 20120928
  Serious: Yes (Hospitalization)
  Sender: FDA-Public Use
  Company Number: US-BAYER-2012-054577

PATIENT
  Age: 42 Year
  Sex: Female
  Weight: 80.272 kg

DRUGS (3)
  1. EFFEXOR XR [Concomitant]
  2. CELEBREX [Concomitant]
  3. MIRENA [Suspect]
     Indication: CONTRACEPTION
     Dosage: 20 MCG/24HR, CONT
     Route: 015
     Dates: end: 20120515

REACTIONS (3)
  - PANIC ATTACK [None]
  - DEVICE BREAKAGE [None]
  - DISCOMFORT [None]
